FAERS Safety Report 24225022 (Version 7)
Quarter: 2025Q1

REPORT INFORMATION
  Report Type: Spontaneous
  Country: US (occurrence: US)
  Receive Date: 20240820
  Receipt Date: 20250212
  Transmission Date: 20250409
  Serious: Yes (Other)
  Sender: SANOFI AVENTIS
  Company Number: US-SA-SAC20240816000046

PATIENT
  Age: 67 Year
  Sex: Male

DRUGS (6)
  1. DUPIXENT [Suspect]
     Active Substance: DUPILUMAB
     Indication: Asthma
     Dosage: 300 MG, QOW
     Route: 058
     Dates: start: 20220722
  2. LORATADINE [Concomitant]
     Active Substance: LORATADINE
  3. ELIQUIS [Concomitant]
     Active Substance: APIXABAN
  4. ELIQUIS [Concomitant]
     Active Substance: APIXABAN
  5. HUMIRA [Concomitant]
     Active Substance: ADALIMUMAB
  6. OTEZLA [Concomitant]
     Active Substance: APREMILAST

REACTIONS (9)
  - Skin cancer [Unknown]
  - Impaired quality of life [Unknown]
  - Loss of personal independence in daily activities [Unknown]
  - Pain [Not Recovered/Not Resolved]
  - Rash [Unknown]
  - Skin discomfort [Unknown]
  - Asthma [Unknown]
  - Drug ineffective [Unknown]
  - Viral infection [Not Recovered/Not Resolved]

NARRATIVE: CASE EVENT DATE: 20240601
